FAERS Safety Report 9366880 (Version 1)
Quarter: 2013Q2

REPORT INFORMATION
  Report Type: Spontaneous
  Country: GB (occurrence: None)
  Receive Date: 20130621
  Receipt Date: 20130621
  Transmission Date: 20140414
  Serious: Yes (Other)
  Sender: FDA-Public Use
  Company Number: GB-1198826

PATIENT
  Sex: Female

DRUGS (2)
  1. CILOXAN [Suspect]
     Route: 047
  2. PREDNISOLONE ACETATE [Suspect]
     Route: 047

REACTIONS (8)
  - Polyneuropathy [None]
  - Hypoaesthesia [None]
  - Burning sensation [None]
  - Skin burning sensation [None]
  - Malaise [None]
  - Back pain [None]
  - Groin pain [None]
  - Pain in extremity [None]
